FAERS Safety Report 7530128-9 (Version None)
Quarter: 2011Q2

REPORT INFORMATION
  Report Type: 
  Country: None (occurrence: None)
  Receive Date: 20110607
  Receipt Date: 20110121
  Transmission Date: 20111010
  Serious: Yes (Hospitalization, Other)
  Sender: FDA-Public Use
  Company Number: US-BAYER-201029293NA

PATIENT
  Age: 40 Year
  Sex: Female
  Weight: 125 kg

DRUGS (28)
  1. YASMIN [Suspect]
     Dosage: UNK
     Route: 048
     Dates: start: 19991101, end: 20050601
  2. PREDNISONE [Concomitant]
     Route: 048
  3. SUDAFED 12 HOUR [Concomitant]
     Dosage: UNK
     Dates: start: 20040405
  4. MECLIZINE HCL [Concomitant]
     Indication: DIZZINESS
     Dosage: 25 MG, UNK
     Route: 048
     Dates: start: 20040405
  5. ADVAIR DISKUS 100/50 [Concomitant]
     Indication: ASTHMA
     Dosage: ONCE OR TWICE DAILY
     Route: 055
     Dates: start: 20030101
  6. GLUCOPHAGE [Concomitant]
     Dosage: 500 MG, TID
     Route: 048
     Dates: start: 20020614
  7. ASMANEX TWISTHALER [Concomitant]
     Indication: ASTHMA
  8. COMBIVENT [Concomitant]
     Dosage: UNK
     Dates: start: 20041110
  9. ACETAMINOPHEN [Concomitant]
     Dosage: UNK
     Dates: start: 20041221
  10. IBUPROFEN [Concomitant]
     Dosage: UNK
     Dates: start: 20041221
  11. SYNTHROID [Concomitant]
     Indication: HYPOTHYROIDISM
     Dosage: 112 ?G, UNK
     Route: 048
     Dates: start: 20030101
  12. SINGULAIR [Concomitant]
     Indication: ASTHMA
     Dosage: DAILY DOSE 10 MG
     Route: 048
     Dates: start: 20030326, end: 20100101
  13. VICODIN [Concomitant]
  14. PREDNISONE [Concomitant]
     Route: 048
  15. METFORMIN HCL [Concomitant]
     Indication: GLUCOSE TOLERANCE IMPAIRED
     Dosage: UNK
     Dates: start: 20030101
  16. LORATADINE [Concomitant]
     Indication: MULTIPLE ALLERGIES
  17. HERBAL PREPARATION [Suspect]
  18. SPIRIVA [Concomitant]
     Dosage: UNK
     Dates: start: 20041207
  19. ANTIBIOTICS [Concomitant]
  20. ZITHROMAX [Concomitant]
     Dosage: 250 MG, UNK
     Route: 048
     Dates: start: 20021118
  21. COMBIVENT [Concomitant]
     Dosage: UNK
     Dates: start: 20031205
  22. MEDROL [Concomitant]
     Dosage: 4 MG, UNK
     Dates: start: 20040405
  23. YAZ [Suspect]
     Route: 048
     Dates: start: 19991101, end: 20050122
  24. SPIRIVA [Concomitant]
     Indication: ASTHMA
     Dosage: UNK UNK, QD
     Route: 055
     Dates: start: 20030101
  25. WELLBUTRIN [Concomitant]
     Indication: DEPRESSION
     Dosage: UNK
     Dates: start: 20000101
  26. ALBUTEROL SULFATE AUTOHALER [Concomitant]
     Indication: ASTHMA
     Dosage: 2 DF, UNK
     Route: 055
     Dates: start: 20030101, end: 20090101
  27. SYNTHROID [Concomitant]
     Dosage: 0.1 MG, QD
     Route: 048
     Dates: start: 20020614
  28. NEXIUM [Concomitant]
     Indication: DYSPEPSIA
     Dosage: 40 MG, UNK
     Dates: start: 20040824

REACTIONS (7)
  - TENSION [None]
  - PULMONARY CONGESTION [None]
  - PULMONARY EMBOLISM [None]
  - DYSPNOEA [None]
  - PRODUCTIVE COUGH [None]
  - PLEURITIC PAIN [None]
  - ANXIETY [None]
